FAERS Safety Report 6573101-X (Version None)
Quarter: 2010Q1

REPORT INFORMATION
  Report Type: 
  Country: None (occurrence: None)
  Receive Date: 20100208
  Receipt Date: 20100202
  Transmission Date: 20100710
  Serious: Yes (Life-Threatening)
  Sender: FDA-Public Use
  Company Number: FR-JNJFOC-20100200846

PATIENT
  Age: 55 Year
  Sex: Male

DRUGS (5)
  1. HALDOL [Suspect]
     Indication: DELIRIUM
     Route: 048
     Dates: end: 20080816
  2. RIFATER [Suspect]
     Indication: TUBERCULOSIS
     Route: 065
  3. MYAMBUTOL [Suspect]
     Indication: TUBERCULOSIS
     Route: 048
  4. ZYLORIC [Suspect]
     Indication: DRUG USE FOR UNKNOWN INDICATION
     Route: 048
  5. AMLOR [Suspect]
     Indication: HYPERTENSION
     Route: 048

REACTIONS (1)
  - DRUG RASH WITH EOSINOPHILIA AND SYSTEMIC SYMPTOMS [None]
